FAERS Safety Report 4421029-3 (Version None)
Quarter: 2004Q3

REPORT INFORMATION
  Report Type: 
  Country: None (occurrence: None)
  Receive Date: 20040809
  Receipt Date: 20040728
  Transmission Date: 20050211
  Serious: Yes (Other)
  Sender: FDA-Public Use
  Company Number: JP-GLAXOSMITHKLINE-B0341139A

PATIENT
  Age: 73 Year
  Sex: Male

DRUGS (1)
  1. ZANTAC [Suspect]
     Dates: start: 20030501, end: 20030501

REACTIONS (3)
  - ANAPHYLACTIC SHOCK [None]
  - HYPOXIC ENCEPHALOPATHY [None]
  - RENAL FAILURE ACUTE [None]
